FAERS Safety Report 6583265-X (Version None)
Quarter: 2010Q1

REPORT INFORMATION
  Report Type: 
  Country: None (occurrence: None)
  Receive Date: 20100216
  Receipt Date: 20100211
  Transmission Date: 20100710
  Serious: Yes (Other)
  Sender: FDA-Public Use
  Company Number: A0842339A

PATIENT
  Age: 80 Year
  Sex: Female

DRUGS (10)
  1. VENTOLIN [Suspect]
     Indication: PNEUMONIA
     Dosage: 1PUFF FOUR TIMES PER DAY
     Route: 055
     Dates: start: 20100126
  2. LEVAQUIN [Concomitant]
  3. ALLOPURINOL [Concomitant]
  4. RALOXIFENE HCL [Concomitant]
  5. PRILOSEC [Concomitant]
  6. CLONIDINE [Concomitant]
  7. PRAVASTATIN [Concomitant]
  8. ASPIRIN [Concomitant]
  9. CALCIUM SUPPLEMENT [Concomitant]
  10. ROBITUSSIN COUGH SYRUP [Concomitant]
     Dates: end: 20100130

REACTIONS (3)
  - AGEUSIA [None]
  - ANOSMIA [None]
  - SINUSITIS [None]
